FAERS Safety Report 11271385 (Version 1)
Quarter: 2015Q3

REPORT INFORMATION
  Report Type: Spontaneous
  Country: US (occurrence: US)
  Receive Date: 20150714
  Receipt Date: 20150714
  Transmission Date: 20151125
  Serious: No
  Sender: FDA-Public Use
  Company Number: US-LUNDBECK-DKLU1112551

PATIENT
  Sex: Male
  Weight: 59 kg

DRUGS (3)
  1. NORTHERA [Suspect]
     Active Substance: DROXIDOPA
     Indication: MULTIPLE SYSTEM ATROPHY
     Route: 048
  2. NORTHERA [Suspect]
     Active Substance: DROXIDOPA
     Route: 048
  3. NORTHERA [Suspect]
     Active Substance: DROXIDOPA
     Indication: PARKINSONISM
     Dosage: TITRATION
     Route: 048
     Dates: start: 201504

REACTIONS (4)
  - Headache [Recovering/Resolving]
  - Blood pressure increased [Recovering/Resolving]
  - Fatigue [Recovering/Resolving]
  - Eye pain [Recovering/Resolving]
